FAERS Safety Report 7967394-1 (Version None)
Quarter: 2011Q4

REPORT INFORMATION
  Report Type: 
  Country: None (occurrence: None)
  Receive Date: 20111209
  Receipt Date: 20111206
  Transmission Date: 20120403
  Serious: No
  Sender: FDA-Public Use
  Company Number: US-PFIZER INC-2011261668

PATIENT
  Sex: Male
  Weight: 89.796 kg

DRUGS (3)
  1. DIGOXIN [Concomitant]
     Indication: HYPERTENSION
     Dosage: 0.25 MG, DAILY
  2. IBUPROFEN (ADVIL) [Suspect]
     Indication: PAIN
     Dosage: 200 MG, AS NEEDED
     Dates: start: 20111001, end: 20111025
  3. WARFARIN SODIUM [Suspect]
     Dosage: UNK

REACTIONS (2)
  - BLOOD DISORDER [None]
  - JOINT SWELLING [None]
